FAERS Safety Report 5248076-6 (Version None)
Quarter: 2007Q1

REPORT INFORMATION
  Report Type: 
  Country: None (occurrence: None)
  Receive Date: 20070222
  Receipt Date: 20070214
  Transmission Date: 20070707
  Serious: Yes (Hospitalization)
  Sender: FDA-Public Use
  Company Number: 20070057

PATIENT
  Age: 62 Year
  Sex: Male

DRUGS (11)
  1. VENOFER [Suspect]
     Dosage: 200MG IV
     Route: 042
     Dates: start: 20070109, end: 20070109
  2. ZESTORETIC [Concomitant]
  3. ALLOPURINOL [Concomitant]
  4. VASTEN [Concomitant]
  5. NEXIUM [Concomitant]
  6. FUMAFER [Concomitant]
  7. PLAVIX [Concomitant]
  8. KARDEGIC [Concomitant]
  9. NOVONORM [Concomitant]
  10. ZANIDIP [Concomitant]
  11. OMIX [Concomitant]

REACTIONS (3)
  - ANXIETY [None]
  - DYSPNOEA [None]
  - FACE OEDEMA [None]
